FAERS Safety Report 4356595-X (Version None)
Quarter: 2004Q2

REPORT INFORMATION
  Report Type: 
  Country: None (occurrence: None)
  Receive Date: 20040512
  Receipt Date: 20040501
  Transmission Date: 20050107
  Serious: Yes (Hospitalization)
  Sender: FDA-Public Use
  Company Number: PHNU2004DE01694

PATIENT
  Age: 50 Year
  Sex: Female

DRUGS (9)
  1. CO-DIOVAN [Suspect]
     Indication: HYPERTENSION
     Dosage: 1 DF, QD
     Route: 048
     Dates: start: 20040428
  2. NITROLINGUAL [Suspect]
     Indication: ANGINA PECTORIS
     Dosage: 2 PUFFS/D
     Route: 048
     Dates: start: 20020101
  3. BELOC - SLOW RELEASE [Suspect]
     Indication: HYPERTENSION
     Dosage: 1 DF, BID
     Route: 048
     Dates: start: 20040428
  4. FUROSEMIDE ^RATIOPHARM^ [Suspect]
     Dosage: 1 DF, QD
     Dates: start: 20040428
  5. HERZASS ^RATIOPHARM^ [Concomitant]
     Indication: CORONARY ARTERY DISEASE
     Dosage: 1 DF, QD
     Route: 048
     Dates: start: 20020101
  6. LEVOTHYROXINE SODIUM [Concomitant]
  7. SIMVASTATIN [Concomitant]
  8. APONAL [Concomitant]
  9. PLAVIX [Concomitant]

REACTIONS (4)
  - ANGINA PECTORIS [None]
  - HYPOTENSION [None]
  - MYOCARDIAL INFARCTION [None]
  - OXYGEN SATURATION DECREASED [None]
